FAERS Safety Report 5422871-2 (Version None)
Quarter: 2007Q3

REPORT INFORMATION
  Report Type: 
  Country: None (occurrence: None)
  Receive Date: 20070820
  Receipt Date: 20070806
  Transmission Date: 20080115
  Serious: Yes (Death, Hospitalization)
  Sender: FDA-Public Use
  Company Number: 2006JP002317

PATIENT
  Age: 44 Year
  Sex: Male

DRUGS (3)
  1. PROGRAF [Suspect]
     Indication: LIVER TRANSPLANT
     Dosage: ORAL
     Route: 048
  2. CYCLOSPORINE [Concomitant]
  3. PREDNISOLONE [Concomitant]

REACTIONS (10)
  - COMPLICATIONS OF TRANSPLANTED LIVER [None]
  - CONDITION AGGRAVATED [None]
  - DISEASE RECURRENCE [None]
  - ENCEPHALITIS [None]
  - HEADACHE [None]
  - HEPATITIS B [None]
  - HEPATITIS C [None]
  - MENINGITIS BACTERIAL [None]
  - MUCORMYCOSIS [None]
  - VISUAL ACUITY REDUCED [None]
